FAERS Safety Report 17922292 (Version 4)
Quarter: 2020Q3

REPORT INFORMATION
  Report Type: Spontaneous
  Country: US (occurrence: US)
  Receive Date: 20200622
  Receipt Date: 20200713
  Transmission Date: 20201103
  Serious: Yes (Other)
  Sender: FDA-Public Use
  Company Number: US-PFIZER INC-2020214723

PATIENT
  Age: 78 Year
  Sex: Male

DRUGS (2)
  1. MEKTOVI [Suspect]
     Active Substance: BINIMETINIB
     Indication: MALIGNANT MELANOMA
     Dosage: 30 MG, 2X/DAY (TWO 15 MG TABLETS, TWICE DAILY)
     Route: 048
     Dates: start: 20191108
  2. MEKTOVI [Suspect]
     Active Substance: BINIMETINIB
     Dosage: 30 MG, 2X/DAY (TWO 15 MG TABLETS, TWICE DAILY)
     Route: 048
     Dates: end: 20200625

REACTIONS (4)
  - Neoplasm progression [Unknown]
  - Off label use [Unknown]
  - Anaemia [Unknown]
  - Product use in unapproved indication [Unknown]

NARRATIVE: CASE EVENT DATE: 20191108
